FAERS Safety Report 6099405-5 (Version None)
Quarter: 2009Q1

REPORT INFORMATION
  Report Type: 
  Country: None (occurrence: None)
  Receive Date: 20090211
  Receipt Date: 20090211
  Transmission Date: 20090719
  Serious: Yes (Other)
  Sender: FDA-Public Use
  Company Number: None

PATIENT
  Sex: Female

DRUGS (1)
  1. BREATHE RIGHT SNORE RELIEF (FORMULATION UNKNOWN) (BREATHE RIGHT SNORE [Suspect]
     Indication: DRUG USE FOR UNKNOWN INDICATION

REACTIONS (6)
  - CHOKING [None]
  - DYSPNOEA [None]
  - FOREIGN BODY TRAUMA [None]
  - PHARYNGEAL HAEMORRHAGE [None]
  - PRODUCT QUALITY ISSUE [None]
  - SENSATION OF FOREIGN BODY [None]
